FAERS Safety Report 6970608-8 (Version None)
Quarter: 2010Q3

REPORT INFORMATION
  Report Type: 
  Country: None (occurrence: None)
  Receive Date: 20100908
  Receipt Date: 20100827
  Transmission Date: 20110219
  Serious: Yes (Hospitalization)
  Sender: FDA-Public Use
  Company Number: PHHY2010CZ56772

PATIENT
  Age: 74 Year
  Sex: Female

DRUGS (5)
  1. GLEEVEC [Suspect]
     Indication: GASTROINTESTINAL STROMAL TUMOUR
     Dosage: 400 MG PER DAY
     Route: 048
     Dates: start: 20100318, end: 20100422
  2. GLEEVEC [Suspect]
     Dosage: 300 MG PER DAY
     Route: 048
     Dates: start: 20100729, end: 20100812
  3. LEXAURIN [Concomitant]
  4. ENDIARON [Concomitant]
  5. XALATAN [Concomitant]

REACTIONS (5)
  - CACHEXIA [None]
  - DECREASED APPETITE [None]
  - DIARRHOEA [None]
  - DRUG INTOLERANCE [None]
  - GASTROINTESTINAL PAIN [None]
